FAERS Safety Report 8020264-5 (Version None)
Quarter: 2012Q1

REPORT INFORMATION
  Report Type: 
  Country: None (occurrence: None)
  Receive Date: 20120103
  Receipt Date: 20111230
  Transmission Date: 20120608
  Serious: Yes (Other)
  Sender: FDA-Public Use
  Company Number: IT-ROCHE-1026697

PATIENT
  Sex: Male

DRUGS (3)
  1. ZOFRAN [Concomitant]
  2. XELODA [Suspect]
     Indication: RECTAL ADENOMA
     Route: 048
     Dates: start: 20110610, end: 20111115
  3. ELOXATIN [Concomitant]
     Indication: RECTAL ADENOMA
     Route: 042
     Dates: start: 20110610, end: 20111115

REACTIONS (1)
  - LARYNGOSPASM [None]
